FAERS Safety Report 16389089 (Version 2)
Quarter: 2019Q2

REPORT INFORMATION
  Report Type: Spontaneous
  Country: IT (occurrence: IT)
  Receive Date: 20190604
  Receipt Date: 20190626
  Transmission Date: 20190711
  Serious: Yes (Hospitalization)
  Sender: FDA-Public Use
  Company Number: IT-PFIZER INC-2019233430

PATIENT
  Age: 36 Year
  Sex: Female

DRUGS (2)
  1. ALPRAZOLAM. [Suspect]
     Active Substance: ALPRAZOLAM
     Indication: ANXIETY
     Dosage: 40 GTT, SINGLE
     Route: 048
     Dates: start: 20190422, end: 20190422
  2. ALPRAZOLAM. [Suspect]
     Active Substance: ALPRAZOLAM
     Indication: ANXIETY
     Dosage: 4 TABLETS, SINGLE
     Route: 048
     Dates: start: 20190422, end: 20190422

REACTIONS (3)
  - Depressed level of consciousness [Recovering/Resolving]
  - Accidental overdose [Unknown]
  - Sopor [Recovering/Resolving]

NARRATIVE: CASE EVENT DATE: 20190422
